FAERS Safety Report 16020663 (Version 2)
Quarter: 2019Q1

REPORT INFORMATION
  Report Type: Report from Study
  Country: DE (occurrence: DE)
  Receive Date: 20190301
  Receipt Date: 20190327
  Transmission Date: 20190418
  Serious: No
  Sender: FDA-Public Use
  Company Number: DE-ROCHE-2274438

PATIENT
  Age: 30 Year
  Sex: Female

DRUGS (5)
  1. PARACETAMOL [Concomitant]
     Active Substance: ACETAMINOPHEN
     Dosage: INDICATION: OCRELIZUMAB CO-ADMINISTRATION
     Route: 041
     Dates: start: 20180518
  2. FENISTIL (GERMANY) [Concomitant]
     Active Substance: DIMETHINDENE MALEATE
     Indication: ADJUVANT THERAPY
     Dosage: INDICATION: OCRELIZUMAB ADJUVANT THERAPY
     Route: 040
     Dates: start: 20180518
  3. OCRELIZUMAB. [Suspect]
     Active Substance: OCRELIZUMAB
     Indication: MULTIPLE SCLEROSIS
     Route: 041
     Dates: start: 20180518
  4. METHYLPREDNISOLONE. [Concomitant]
     Active Substance: METHYLPREDNISOLONE
     Indication: ADJUVANT THERAPY
     Dosage: INDICATION: OCRELIZUMAB ADJUVANT THERAPY
     Route: 041
     Dates: start: 20180518
  5. RANITIDIN [Concomitant]
     Active Substance: RANITIDINE HYDROCHLORIDE
     Indication: ADJUVANT THERAPY
     Dosage: INDICATION: OCRELIZUMAB ADJUVANT THERAPY
     Route: 040
     Dates: start: 20180518

REACTIONS (1)
  - Bronchitis [Recovered/Resolved]

NARRATIVE: CASE EVENT DATE: 20181106
